FAERS Safety Report 9637202 (Version 8)
Quarter: 2014Q1

REPORT INFORMATION
  Report Type: Report from Study
  Country: JP (occurrence: JP)
  Receive Date: 20131022
  Receipt Date: 20140127
  Transmission Date: 20141002
  Serious: Yes (Death, Hospitalization, Other)
  Sender: FDA-Public Use
  Company Number: JP-JNJFOC-20131002754

PATIENT
  Age: 51 Year
  Sex: Male

DRUGS (11)
  1. STELARA [Suspect]
     Indication: PSORIASIS
     Route: 058
     Dates: start: 20120717, end: 20120717
  2. STELARA [Suspect]
     Indication: PSORIASIS
     Route: 058
     Dates: start: 20120813, end: 20120813
  3. STELARA [Suspect]
     Indication: PSORIASIS
     Route: 058
     Dates: start: 20130128, end: 20130128
  4. STELARA [Suspect]
     Indication: PSORIASIS
     Route: 058
     Dates: start: 20130422, end: 20130422
  5. STELARA [Suspect]
     Indication: PSORIASIS
     Route: 058
     Dates: start: 20130722, end: 20130722
  6. STELARA [Suspect]
     Indication: PSORIASIS
     Route: 058
     Dates: start: 20121105, end: 20121105
  7. BARACLUDE [Suspect]
     Indication: PROPHYLAXIS
     Route: 048
     Dates: start: 20120508, end: 20130820
  8. NEORAL [Concomitant]
     Indication: PSORIASIS
     Route: 048
     Dates: start: 20120420, end: 20120827
  9. OXAROL [Concomitant]
     Indication: PSORIASIS
     Route: 061
     Dates: start: 20120420
  10. DERMOVATE [Concomitant]
     Indication: PSORIASIS
     Route: 061
     Dates: start: 20120420, end: 20130617
  11. METHADERM [Concomitant]
     Indication: PSORIASIS
     Route: 061
     Dates: start: 20120420

REACTIONS (6)
  - Multi-organ failure [Fatal]
  - Hepatic haemorrhage [Fatal]
  - Disseminated intravascular coagulation [Fatal]
  - Platelet count decreased [Fatal]
  - Diarrhoea [Unknown]
  - Mixed hepatocellular cholangiocarcinoma [Not Recovered/Not Resolved]
